FAERS Safety Report 7977176-2 (Version None)
Quarter: 2011Q4

REPORT INFORMATION
  Report Type: 
  Country: None (occurrence: None)
  Receive Date: 20111213
  Receipt Date: 20111110
  Transmission Date: 20120403
  Serious: Yes (Hospitalization, Other)
  Sender: FDA-Public Use
  Company Number: US-AMGEN-QUU263275

PATIENT
  Age: 66 Year
  Sex: Male

DRUGS (12)
  1. FOLIC ACID [Concomitant]
  2. ENBREL [Suspect]
     Indication: RHEUMATOID ARTHRITIS
     Dosage: UNK UNK, UNK
     Dates: start: 20050701
  3. PREDNISONE TAB [Concomitant]
     Dosage: UNK UNK, UNK
  4. ALLOPURINOL [Concomitant]
     Dosage: UNK UNK, UNK
  5. COLCHICINE [Concomitant]
     Dosage: UNK UNK, UNK
  6. METHOTREXATE [Concomitant]
     Dosage: UNK UNK, UNK
  7. LOVAZA [Concomitant]
  8. GABAPENTIN [Concomitant]
  9. CHONDROITIN [Concomitant]
  10. CELEBREX [Concomitant]
  11. HYDROXYCHLOROQUINE SULFATE [Concomitant]
     Dosage: UNK UNK, UNK
  12. GLUCOSAMINE [Concomitant]

REACTIONS (6)
  - METASTATIC MALIGNANT MELANOMA [None]
  - SEBORRHOEIC KERATOSIS [None]
  - BASAL CELL CARCINOMA [None]
  - ESCHERICHIA INFECTION [None]
  - ABSCESS BACTERIAL [None]
  - MALIGNANT MELANOMA [None]
